FAERS Safety Report 7938846 (Version 2)
Quarter: 2012Q4

REPORT INFORMATION
  Report Type: 
  Country: US (occurrence: US)
  Receive Date: 20110510
  Receipt Date: 20121105
  Transmission Date: 20130627
  Serious: No
  Sender: FDA-Public Use
  Company Number: US-B.I. PHARMACEUTICALS,INC./RIDGEFIELD-2011-BP-11715BP

PATIENT
  Age: 66 Year
  Sex: Female

DRUGS (8)
  1. PRADAXA [Suspect]
     Indication: ATRIAL FIBRILLATION
     Dosage: 300 mg
     Route: 048
     Dates: start: 2010
  2. SYNTHROID [Concomitant]
     Indication: HYPOTHYROIDISM
     Dosage: 100 mcg
     Route: 048
  3. EVISTA [Concomitant]
     Indication: OSTEOPOROSIS
     Dosage: 60 mg
     Route: 048
     Dates: start: 2000
  4. EVISTA [Concomitant]
     Indication: OSTEOPENIA
  5. RYTHMOL [Concomitant]
     Indication: ATRIAL FIBRILLATION
     Dosage: 450 mg
     Route: 048
     Dates: start: 2004
  6. ALTACE [Concomitant]
     Indication: HYPERTENSION
     Dosage: 2.5 mg
     Route: 048
     Dates: start: 2007
  7. TIROSINT [Concomitant]
     Indication: HYPOTHYROIDISM
     Dosage: 88 mcg
     Route: 048
  8. VITAMIN D [Concomitant]
     Dosage: 50000 U

REACTIONS (6)
  - Diarrhoea [Not Recovered/Not Resolved]
  - Diarrhoea [Not Recovered/Not Resolved]
  - Contusion [Not Recovered/Not Resolved]
  - Sciatica [Not Recovered/Not Resolved]
  - Musculoskeletal discomfort [Not Recovered/Not Resolved]
  - Blood cholesterol decreased [Recovered/Resolved]
